FAERS Safety Report 5567608-1 (Version None)
Quarter: 2007Q4

REPORT INFORMATION
  Report Type: 
  Country: None (occurrence: None)
  Receive Date: 20071219
  Receipt Date: 20071211
  Transmission Date: 20080405
  Serious: Yes (Other)
  Sender: FDA-Public Use
  Company Number: FR-PFIZER INC-2007105204

PATIENT
  Age: 47 Year
  Sex: Male

DRUGS (3)
  1. CHANTIX [Suspect]
  2. AMLODIPINE [Concomitant]
     Indication: HYPERTENSION
  3. COTAREG [Concomitant]
     Indication: HYPERTENSION

REACTIONS (2)
  - HOMICIDAL IDEATION [None]
  - NERVOUSNESS [None]
